FAERS Safety Report 9534705 (Version 3)
Quarter: 2014Q1

REPORT INFORMATION
  Report Type: Spontaneous
  Country: GB (occurrence: GB)
  Receive Date: 20130918
  Receipt Date: 20140218
  Transmission Date: 20141002
  Serious: Yes (Death, Other)
  Sender: FDA-Public Use
  Company Number: GB-NAPPMUNDI-GBR-2013-0015627

PATIENT
  Age: 39 Year
  Sex: Male

DRUGS (8)
  1. OXYCONTIN TABLETS 80 MG [Suspect]
     Indication: PRODUCT USED FOR UNKNOWN INDICATION
     Route: 065
  2. DIAZEPAM [Interacting]
     Indication: PRODUCT USED FOR UNKNOWN INDICATION
     Route: 065
  3. CO-CODAMOL [Concomitant]
  4. FOSINOPRIL [Concomitant]
  5. MIRTAZAPINE [Concomitant]
  6. OLANZAPINE [Concomitant]
  7. COCAINE [Concomitant]
  8. AMPHETAMINE [Concomitant]

REACTIONS (4)
  - Toxicity to various agents [Fatal]
  - Pneumonia [Fatal]
  - Convulsion [Recovered/Resolved]
  - Drug interaction [Fatal]
